FAERS Safety Report 15487897 (Version 1)
Quarter: 2018Q4

REPORT INFORMATION
  Report Type: Spontaneous
  Country: US (occurrence: US)
  Receive Date: 20181011
  Receipt Date: 20181011
  Transmission Date: 20190205
  Serious: No
  Sender: FDA-Public Use
  Company Number: US-SA-2018SA276851

PATIENT
  Age: 59 Year
  Sex: Female

DRUGS (2)
  1. DUPIXENT [Suspect]
     Active Substance: DUPILUMAB
     Indication: DERMATITIS
  2. DUPIXENT [Suspect]
     Active Substance: DUPILUMAB
     Indication: DERMATITIS ATOPIC
     Dosage: 600 MG, 1X
     Route: 058
     Dates: start: 20180929, end: 20180929

REACTIONS (4)
  - Injection site bruising [Unknown]
  - Injection site mass [Unknown]
  - Lacrimation increased [Not Recovered/Not Resolved]
  - Eye pruritus [Not Recovered/Not Resolved]

NARRATIVE: CASE EVENT DATE: 20180929
